FAERS Safety Report 7367212-9 (Version None)
Quarter: 2011Q1

REPORT INFORMATION
  Report Type: 
  Country: None (occurrence: None)
  Receive Date: 20110322
  Receipt Date: 20110316
  Transmission Date: 20110831
  Serious: Yes (Death)
  Sender: FDA-Public Use
  Company Number: CA-PFIZER INC-2009296649

PATIENT
  Age: 69 Year
  Sex: Female
  Weight: 67 kg

DRUGS (6)
  1. NEXIUM [Concomitant]
     Indication: PROPHYLAXIS AGAINST GASTROINTESTINAL ULCER
     Dosage: 20 MG, 1X/DAY
     Route: 048
     Dates: start: 20081018
  2. CARBOCAL D 400 [Concomitant]
     Dosage: 400 IU, 2X/DAY
     Route: 048
     Dates: start: 19880101
  3. IBUPROFEN [Suspect]
     Indication: OSTEOARTHRITIS
     Dosage: 600 MG, 3X/DAY
     Route: 048
     Dates: start: 20081018
  4. ASPIRIN [Concomitant]
     Dosage: 80 MG, 1X/DAY
     Route: 048
     Dates: start: 19980101
  5. TIAZAC [Concomitant]
     Dosage: 360 MG, 1X/DAY
     Route: 048
     Dates: start: 19880101
  6. DIOVAN HCT [Concomitant]
     Dosage: 160MG/25MG
     Route: 048
     Dates: start: 19830101

REACTIONS (1)
  - DEATH [None]
